FAERS Safety Report 7580498-0 (Version None)
Quarter: 2011Q2

REPORT INFORMATION
  Report Type: 
  Country: None (occurrence: None)
  Receive Date: 20110629
  Receipt Date: 20110623
  Transmission Date: 20111010
  Serious: Yes (Other)
  Sender: FDA-Public Use
  Company Number: A0932791A

PATIENT
  Sex: Female
  Weight: 72.7 kg

DRUGS (3)
  1. SYMBICORT [Concomitant]
     Dosage: 3PUFF THREE TIMES PER DAY
     Route: 065
  2. ADVAIR DISKUS 100/50 [Suspect]
     Dosage: 1PUFF TWICE PER DAY
     Route: 055
     Dates: start: 20070101
  3. ALBUTEROL [Suspect]
     Route: 065

REACTIONS (5)
  - COUGH [None]
  - INCREASED UPPER AIRWAY SECRETION [None]
  - CHOKING [None]
  - DRUG INEFFECTIVE [None]
  - DYSPNOEA [None]
